FAERS Safety Report 16753382 (Version 1)
Quarter: 2019Q3

REPORT INFORMATION
  Report Type: Spontaneous
  Country: FR (occurrence: FR)
  Receive Date: 20190829
  Receipt Date: 20190829
  Transmission Date: 20191005
  Serious: Yes (Other)
  Sender: FDA-Public Use
  Company Number: FR-TEVA-2019-FR-1098480

PATIENT
  Age: 59 Year
  Sex: Female
  Weight: 51 kg

DRUGS (2)
  1. CARBOPLATINE [Suspect]
     Active Substance: CARBOPLATIN
     Indication: LUNG ADENOCARCINOMA
     Dosage: 170 MILLIGRAM, 1 CYCLICAL
     Route: 041
     Dates: start: 20190730
  2. ABRAXANE 5 MG/ML, POUDRE POUR SUSPENSION INJECTABLE POUR PERFUSION [Concomitant]
     Indication: LUNG ADENOCARCINOMA
     Dosage: 144 MILLIGRAM, 1 TOTAL
     Route: 041
     Dates: start: 20190730

REACTIONS (1)
  - Type I hypersensitivity [Recovered/Resolved]

NARRATIVE: CASE EVENT DATE: 20190730
